FAERS Safety Report 14819963 (Version 3)
Quarter: 2018Q2

REPORT INFORMATION
  Report Type: Report from Study
  Country: FR (occurrence: FR)
  Receive Date: 20180427
  Receipt Date: 20180615
  Transmission Date: 20180711
  Serious: Yes (Hospitalization)
  Sender: FDA-Public Use
  Company Number: FR-VELOXIS PHARMACEUTICALS-2046730

PATIENT
  Age: 48 Year
  Sex: Male
  Weight: 76 kg

DRUGS (20)
  1. ENVARSUS XR [Suspect]
     Active Substance: TACROLIMUS
     Dosage: 2 MG, QD
     Route: 048
     Dates: start: 20180502
  2. ADOPORT [Concomitant]
     Active Substance: TACROLIMUS
     Indication: RENAL TRANSPLANT
     Dosage: 11 MG, QD
     Dates: start: 20170610, end: 20170620
  3. ADOPORT [Concomitant]
     Active Substance: TACROLIMUS
     Dosage: 8 MG, QD
     Dates: start: 20170711, end: 20170712
  4. CELLCEPT [Concomitant]
     Active Substance: MYCOPHENOLATE MOFETIL\MYCOPHENOLATE MOFETIL HYDROCHLORIDE
     Indication: RENAL TRANSPLANT
     Dosage: 2000 MG, QD
     Dates: start: 20170609
  5. ENVARSUS XR [Suspect]
     Active Substance: TACROLIMUS
     Dosage: 6 MG, QD
     Route: 048
     Dates: start: 201802, end: 20180416
  6. ADVAGRAF [Suspect]
     Active Substance: TACROLIMUS
     Dosage: 6 MG, QD
     Dates: start: 20171115, end: 20180131
  7. ADOPORT [Concomitant]
     Active Substance: TACROLIMUS
     Dosage: 5 MG, QD
     Dates: start: 20170728, end: 20170830
  8. PREVISCAN                          /00789001/ [Concomitant]
     Active Substance: FLUINDIONE
     Indication: DEEP VEIN THROMBOSIS
     Dosage: 0.5 MG, QD
     Dates: start: 20170726
  9. RESIKALI [Concomitant]
     Active Substance: CALCIUM POLYSTYRENE SULFONATE
     Indication: HYPERKALAEMIA
     Dosage: 2 MEASURING SPOON PER WEEK
     Dates: start: 2017, end: 20180131
  10. CORTANCYL [Concomitant]
     Active Substance: PREDNISONE
     Dosage: 7.5 MG, QD
  11. RAMIPRIL. [Concomitant]
     Active Substance: RAMIPRIL
     Indication: HYPERTENSION
     Dosage: 1.25 MG, QD
     Dates: start: 20171115
  12. ENVARSUS XR [Suspect]
     Active Substance: TACROLIMUS
     Indication: PROPHYLAXIS AGAINST TRANSPLANT REJECTION
     Dosage: 7 MG, QD
     Route: 048
     Dates: start: 20180131, end: 201802
  13. ADOPORT [Concomitant]
     Active Substance: TACROLIMUS
     Dosage: 9 MG, QD
     Dates: start: 20170620, end: 20170628
  14. ADOPORT [Concomitant]
     Active Substance: TACROLIMUS
     Dosage: 8.5 MG, QD
     Dates: start: 20170628, end: 20170711
  15. ADOPORT [Concomitant]
     Active Substance: TACROLIMUS
     Dosage: 7.5 MG, QD
     Dates: start: 20170712, end: 201707
  16. RESIKALI [Concomitant]
     Active Substance: CALCIUM POLYSTYRENE SULFONATE
     Dosage: 3 MEASURING SPOON PER WEEK
     Dates: start: 20180131
  17. ADVAGRAF [Suspect]
     Active Substance: TACROLIMUS
     Indication: RENAL TRANSPLANT
     Dosage: 6.5 MG, QD
     Dates: start: 20170830, end: 20171115
  18. CORTANCYL [Concomitant]
     Active Substance: PREDNISONE
     Indication: RENAL TRANSPLANT
     Dosage: 10 MG, QD
     Dates: start: 20170620
  19. INEXIUM                            /01479302/ [Concomitant]
     Active Substance: ESOMEPRAZOLE MAGNESIUM
     Indication: OESOPHAGITIS
     Dosage: 20 MG, QD
     Dates: start: 2017
  20. ADOPORT [Concomitant]
     Active Substance: TACROLIMUS
     Dosage: 6 MG, QD
     Dates: start: 201702, end: 20170728

REACTIONS (2)
  - Pneumocystis jirovecii pneumonia [Recovered/Resolved]
  - Tinnitus [Recovered/Resolved]

NARRATIVE: CASE EVENT DATE: 201710
